FAERS Safety Report 13151442 (Version 1)
Quarter: 2017Q1

REPORT INFORMATION
  Report Type: Spontaneous
  Country: US (occurrence: US)
  Receive Date: 20170125
  Receipt Date: 20170125
  Transmission Date: 20170428
  Serious: No
  Sender: FDA-Public Use
  Company Number: US-KADMON PHARMACEUTICALS, LLC-KAD201605-001890

PATIENT
  Age: 46 Year
  Sex: Male
  Weight: 79.38 kg

DRUGS (3)
  1. RIBASPHERE RIBAPAK [Suspect]
     Active Substance: RIBAVIRIN
     Indication: HEPATITIS C
     Dosage: 200 MG THREE TABLETS (600 MG), TWICE A DAY (DAILY DOSE: 1200 MG)
     Route: 048
     Dates: start: 20160504
  2. ALBUTEROL. [Concomitant]
     Active Substance: ALBUTEROL
     Indication: ASTHMA
  3. SOVALDI [Suspect]
     Active Substance: SOFOSBUVIR
     Indication: HEPATITIS C
     Route: 048
     Dates: start: 20160504

REACTIONS (5)
  - Abdominal pain upper [Recovered/Resolved with Sequelae]
  - Physical product label issue [Unknown]
  - Insomnia [Unknown]
  - Somnolence [Unknown]
  - Fatigue [Unknown]

NARRATIVE: CASE EVENT DATE: 20160504
